FAERS Safety Report 6101045-6 (Version None)
Quarter: 2009Q1

REPORT INFORMATION
  Report Type: 
  Country: None (occurrence: None)
  Receive Date: 20090304
  Receipt Date: 20090224
  Transmission Date: 20090719
  Serious: Yes (Hospitalization)
  Sender: FDA-Public Use
  Company Number: DE-BRISTOL-MYERS SQUIBB COMPANY-14527014

PATIENT
  Age: 64 Year
  Sex: Male
  Weight: 96 kg

DRUGS (5)
  1. METFORMIN HCL [Suspect]
     Indication: TYPE 2 DIABETES MELLITUS
     Route: 048
  2. GLIMEPIRIDE [Suspect]
     Indication: TYPE 2 DIABETES MELLITUS
     Route: 048
  3. ARTICAINE HCL [Suspect]
     Dosage: ROUTE OF ADMINISTRATION=INFILTRATION
  4. EPINEPHRINE [Suspect]
     Dosage: 1DF=1:100000, ROUTE OF ADMINISTRATION=INFILTRATION.
  5. RAMIPRIL [Concomitant]
     Indication: HYPERTENSION
     Route: 048

REACTIONS (5)
  - ARRHYTHMIA [None]
  - DIZZINESS [None]
  - HYPERTENSION [None]
  - NAUSEA [None]
  - VOMITING [None]
